FAERS Safety Report 24033989 (Version 1)
Quarter: 2024Q3

REPORT INFORMATION
  Report Type: Spontaneous
  Country: US (occurrence: US)
  Receive Date: 20240701
  Receipt Date: 20240701
  Transmission Date: 20241017
  Serious: Yes (Hospitalization, Other)
  Sender: ALEMBIC
  Company Number: US-ALEMBIC PHARMACUETICALS LIMITED-2024SCAL000910

PATIENT

DRUGS (2)
  1. ARIPIPRAZOLE [Suspect]
     Active Substance: ARIPIPRAZOLE
     Indication: Schizophrenia
     Dosage: UNK
     Route: 065
  2. ARIPIPRAZOLE [Suspect]
     Active Substance: ARIPIPRAZOLE
     Indication: Bipolar I disorder

REACTIONS (23)
  - Diabetic ketoacidosis [Unknown]
  - Glycosylated haemoglobin increased [Unknown]
  - Anion gap increased [Unknown]
  - Blood ketone body increased [Unknown]
  - Blood pH decreased [Unknown]
  - Lethargy [Unknown]
  - Pancreatitis acute [Unknown]
  - Abdominal pain [Unknown]
  - Lipase increased [Unknown]
  - Blood glucose increased [Unknown]
  - Distributive shock [Unknown]
  - Renal tubular necrosis [Unknown]
  - Cardio-respiratory arrest [Unknown]
  - Brain injury [Unknown]
  - Cognitive disorder [Unknown]
  - Nervous system disorder [Unknown]
  - Slow response to stimuli [Unknown]
  - Aphasia [Unknown]
  - Hypertriglyceridaemia [Unknown]
  - Diabetes mellitus [Unknown]
  - Polydipsia [Unknown]
  - Polyuria [Unknown]
  - Asthenia [Unknown]
